FAERS Safety Report 25799931 (Version 1)
Quarter: 2025Q3

REPORT INFORMATION
  Report Type: Spontaneous
  Country: US (occurrence: US)
  Receive Date: 20250914
  Receipt Date: 20250914
  Transmission Date: 20251021
  Serious: Yes (Other)
  Sender: ALEXION PHARMACEUTICALS
  Company Number: 202509USA008389US

PATIENT
  Sex: Male

DRUGS (1)
  1. FARXIGA [Suspect]
     Active Substance: DAPAGLIFLOZIN PROPANEDIOL
     Route: 065

REACTIONS (5)
  - Cardiac failure congestive [Unknown]
  - Vascular graft [Unknown]
  - Cardiac disorder [Unknown]
  - Product dose omission issue [Unknown]
  - Off label use [Unknown]
